FAERS Safety Report 16218115 (Version 1)
Quarter: 2019Q2

REPORT INFORMATION
  Report Type: Report from Study
  Country: CA (occurrence: CA)
  Receive Date: 20190419
  Receipt Date: 20190419
  Transmission Date: 20190711
  Serious: Yes (Hospitalization)
  Sender: FDA-Public Use
  Company Number: CA-JNJFOC-20181204627

PATIENT
  Age: 30 Year
  Sex: Male
  Weight: 93.7 kg

DRUGS (1)
  1. REMICADE [Suspect]
     Active Substance: INFLIXIMAB
     Indication: COLITIS ULCERATIVE
     Dosage: STRENGTH = 100 MG
     Route: 042
     Dates: start: 20120621

REACTIONS (7)
  - Seizure [Recovered/Resolved]
  - Stress [Unknown]
  - Pregnancy of partner [Not Recovered/Not Resolved]
  - Weight increased [Unknown]
  - Loss of consciousness [Recovered/Resolved]
  - Abdominal pain [Unknown]
  - Fatigue [Unknown]

NARRATIVE: CASE EVENT DATE: 20181126
